FAERS Safety Report 13682012 (Version 5)
Quarter: 2025Q2

REPORT INFORMATION
  Report Type: Spontaneous
  Country: US (occurrence: US)
  Receive Date: 20170623
  Receipt Date: 20250528
  Transmission Date: 20250716
  Serious: Yes (Other)
  Sender: PFIZER
  Company Number: US-PFIZER INC-2015297658

PATIENT
  Age: 65 Year
  Sex: Male
  Weight: 102.6 kg

DRUGS (1)
  1. PROCAINAMIDE HYDROCHLORIDE [Suspect]
     Active Substance: PROCAINAMIDE HYDROCHLORIDE
     Indication: Arrhythmia

REACTIONS (1)
  - Systemic lupus erythematosus [Recovered/Resolved]
